FAERS Safety Report 7277171-5 (Version None)
Quarter: 2011Q1

REPORT INFORMATION
  Report Type: 
  Country: None (occurrence: None)
  Receive Date: 20110207
  Receipt Date: 20110202
  Transmission Date: 20110831
  Serious: Yes (Death, Hospitalization)
  Sender: FDA-Public Use
  Company Number: NO-PFIZER INC-2010034208

PATIENT
  Age: 70 Year
  Sex: Male

DRUGS (16)
  1. NEULASTA [Interacting]
     Route: 065
  2. NOVANTRON ^NIHON LEDERLE^ [Concomitant]
     Indication: PRODUCT USED FOR UNKNOWN INDICATION
     Dates: start: 20090611, end: 20090723
  3. MABTHERA [Interacting]
     Indication: PRODUCT USED FOR UNKNOWN INDICATION
     Dosage: UNK
     Route: 065
     Dates: start: 20090611, end: 20090723
  4. CYCLOPHOSPHAMIDE [Interacting]
     Indication: PRODUCT USED FOR UNKNOWN INDICATION
     Dosage: UNK
     Route: 065
     Dates: start: 20090611, end: 20090723
  5. FLUCONAZOLE [Suspect]
     Indication: PRODUCT USED FOR UNKNOWN INDICATION
     Route: 065
     Dates: start: 20090916
  6. MITOXANTRONE [Suspect]
     Route: 065
  7. GARAMYCIN [Concomitant]
     Indication: PNEUMONIA BACTERIAL
     Route: 042
     Dates: start: 20090916
  8. MERONEM [Concomitant]
     Indication: PRODUCT USED FOR UNKNOWN INDICATION
     Dates: start: 20090919
  9. CYTARABINE [Concomitant]
     Indication: DIFFUSE LARGE B-CELL LYMPHOMA
     Dates: start: 20090909, end: 20090909
  10. BACTRIM [Concomitant]
     Dates: start: 20091001
  11. SENDOXAN [Suspect]
     Route: 065
  12. PREDNISOLONE [Concomitant]
     Indication: PRODUCT USED FOR UNKNOWN INDICATION
     Route: 065
     Dates: start: 20090611, end: 20090909
  13. ETOPOSIDE [Concomitant]
     Indication: DIFFUSE LARGE B-CELL LYMPHOMA
     Dates: start: 20090909, end: 20090909
  14. NEULASTA [Interacting]
     Indication: PRODUCT USED FOR UNKNOWN INDICATION
     Route: 065
  15. VINCRISTINE [Concomitant]
     Indication: PRODUCT USED FOR UNKNOWN INDICATION
     Dates: start: 20090611, end: 20090723
  16. BENZYLPENICILLIN [Concomitant]
     Indication: PNEUMONIA BACTERIAL
     Route: 042
     Dates: start: 20090216

REACTIONS (3)
  - PNEUMONITIS [None]
  - DEATH [None]
  - DRUG INTERACTION [None]
